FAERS Safety Report 8273295-4 (Version None)
Quarter: 2012Q2

REPORT INFORMATION
  Report Type: 
  Country: None (occurrence: None)
  Receive Date: 20120411
  Receipt Date: 20120409
  Transmission Date: 20120825
  Serious: Yes (Hospitalization)
  Sender: FDA-Public Use
  Company Number: US-PFIZER INC-2012063013

PATIENT

DRUGS (10)
  1. MACRODANTIN [Suspect]
     Dosage: UNK
  2. PERCOCET [Suspect]
     Dosage: UNK
  3. CODEINE [Suspect]
     Dosage: UNK
  4. REGLAN [Suspect]
     Dosage: UNK
  5. DILAUDID [Suspect]
     Dosage: UNK
  6. FLAGYL [Suspect]
     Dosage: UNK
  7. DEMEROL [Suspect]
     Dosage: UNK
  8. MORPHINE SULFATE [Suspect]
     Dosage: UNK
  9. CIPROFLOXACIN [Suspect]
     Dosage: UNK
  10. ALBUTEROL [Suspect]
     Dosage: UNK

REACTIONS (2)
  - ASTHMA [None]
  - DRUG HYPERSENSITIVITY [None]
